FAERS Safety Report 20899514 (Version 1)
Quarter: 2022Q2

REPORT INFORMATION
  Report Type: Spontaneous
  Country: HR (occurrence: HR)
  Receive Date: 20220601
  Receipt Date: 20220601
  Transmission Date: 20220721
  Serious: Yes (Other)
  Sender: FDA-Public Use
  Company Number: HR-PFIZER INC-202200759363

PATIENT
  Age: 78 Year
  Sex: Female
  Weight: 90 kg

DRUGS (1)
  1. DALTEPARIN SODIUM [Suspect]
     Active Substance: DALTEPARIN SODIUM
     Dosage: 5000 IU, 2X/DAY
     Route: 058

REACTIONS (10)
  - Embolism [Unknown]
  - Deep vein thrombosis [Unknown]
  - Postmenopausal haemorrhage [Unknown]
  - Cerebral infarction [Unknown]
  - Tricuspid valve incompetence [Unknown]
  - Mitral valve incompetence [Unknown]
  - Presyncope [Unknown]
  - Dyspnoea [Unknown]
  - Polyp [Unknown]
  - Off label use [Unknown]
